FAERS Safety Report 26079692 (Version 1)
Quarter: 2025Q4

REPORT INFORMATION
  Report Type: Spontaneous
  Country: CN (occurrence: CN)
  Receive Date: 20251123
  Receipt Date: 20251123
  Transmission Date: 20260118
  Serious: Yes (Other)
  Sender: BEIGENE
  Company Number: CN-BEIGENE-BGN-2025-020181

PATIENT
  Age: 65 Year
  Sex: Male
  Weight: 45 kg

DRUGS (12)
  1. TISLELIZUMAB [Suspect]
     Active Substance: TISLELIZUMAB
     Indication: Lung neoplasm malignant
     Dosage: 200 MILLIGRAM
  2. TISLELIZUMAB [Suspect]
     Active Substance: TISLELIZUMAB
     Dosage: 200 MILLIGRAM
     Route: 041
  3. TISLELIZUMAB [Suspect]
     Active Substance: TISLELIZUMAB
     Dosage: 200 MILLIGRAM
     Route: 041
  4. TISLELIZUMAB [Suspect]
     Active Substance: TISLELIZUMAB
     Dosage: 200 MILLIGRAM
  5. ETOPOSIDE [Suspect]
     Active Substance: ETOPOSIDE
     Indication: Lung neoplasm malignant
     Dosage: 0.1 GRAM
  6. ETOPOSIDE [Suspect]
     Active Substance: ETOPOSIDE
     Dosage: 0.1 GRAM
     Route: 041
  7. ETOPOSIDE [Suspect]
     Active Substance: ETOPOSIDE
     Dosage: 0.1 GRAM
     Route: 041
  8. ETOPOSIDE [Suspect]
     Active Substance: ETOPOSIDE
     Dosage: 0.1 GRAM
  9. CARBOPLATIN [Suspect]
     Active Substance: CARBOPLATIN
     Indication: Lung neoplasm malignant
     Dosage: 200 MILLIGRAM
  10. CARBOPLATIN [Suspect]
     Active Substance: CARBOPLATIN
     Dosage: 200 MILLIGRAM
     Route: 041
  11. CARBOPLATIN [Suspect]
     Active Substance: CARBOPLATIN
     Dosage: 200 MILLIGRAM
     Route: 041
  12. CARBOPLATIN [Suspect]
     Active Substance: CARBOPLATIN
     Dosage: 200 MILLIGRAM

REACTIONS (1)
  - Myelosuppression [Recovering/Resolving]

NARRATIVE: CASE EVENT DATE: 20251101
